FAERS Safety Report 6153379-7 (Version None)
Quarter: 2009Q2

REPORT INFORMATION
  Report Type: 
  Country: None (occurrence: None)
  Receive Date: 20090413
  Receipt Date: 20090408
  Transmission Date: 20091009
  Serious: Yes (Hospitalization)
  Sender: FDA-Public Use
  Company Number: US-BRISTOL-MYERS SQUIBB COMPANY-14581227

PATIENT
  Age: 64 Year
  Sex: Male
  Weight: 93 kg

DRUGS (3)
  1. ERBITUX [Suspect]
     Indication: HEAD AND NECK CANCER
     Dosage: 1ST COURSE-02FEB09. 02FEB09-02MAR09:RECIEVED 17 VIALS 800 MG-02MAR09 500 MG-09,16,23FEB + 02MAR09
     Dates: start: 20090302, end: 20090302
  2. CISPLATIN [Suspect]
     Indication: HEAD AND NECK CANCER
     Dosage: 1ST COURSE -02FEB09 200 MG-DAY1-09FEB09 200 MG-DAY21-02MAR09
     Dates: start: 20090302, end: 20090302
  3. RADIATION THERAPY [Suspect]
     Indication: HEAD AND NECK CANCER
     Dosage: STARTED-02FEB09. 1 D.F=4200CGY TOTAL NO OF FRACTIONS:21 NO OF ELASPSED DAYS:25 EXTERNAL BEAM,IMRT
     Dates: start: 20090306, end: 20090306

REACTIONS (15)
  - BLOOD CREATININE ABNORMAL [None]
  - DEHYDRATION [None]
  - DYSPHAGIA [None]
  - GRANULOCYTE COUNT DECREASED [None]
  - HYPOALBUMINAEMIA [None]
  - HYPOCALCAEMIA [None]
  - HYPOKALAEMIA [None]
  - HYPOMAGNESAEMIA [None]
  - HYPOXIA [None]
  - MYOCARDIAL ISCHAEMIA [None]
  - OROPHARYNGEAL PAIN [None]
  - PLATELET COUNT DECREASED [None]
  - PNEUMONITIS [None]
  - STOMATITIS [None]
  - WOUND INFECTION [None]
